FAERS Safety Report 18965661 (Version 1)
Quarter: 2021Q1

REPORT INFORMATION
  Report Type: Spontaneous
  Country: US (occurrence: US)
  Receive Date: 20210304
  Receipt Date: 20210304
  Transmission Date: 20210420
  Serious: Yes (Life-Threatening, Hospitalization, Other)
  Sender: FDA-Public Use
  Company Number: US-LUPIN PHARMACEUTICALS INC.-2021-02547

PATIENT
  Age: 59 Year
  Sex: Female

DRUGS (1)
  1. CALCIUM [Suspect]
     Active Substance: CALCIUM
     Indication: SUPPLEMENTATION THERAPY
     Dosage: UNK?TOOK 10 TABLET SEVERAL TIMES PER DAY PRIOR TO ADMISSION
     Route: 048

REACTIONS (4)
  - Hypercalcaemia [Recovered/Resolved]
  - Cerebral infarction [Recovering/Resolving]
  - Reversible cerebral vasoconstriction syndrome [Recovering/Resolving]
  - Accidental overdose [Unknown]
